FAERS Safety Report 7017393-1 (Version None)
Quarter: 2010Q3

REPORT INFORMATION
  Report Type: 
  Country: None (occurrence: None)
  Receive Date: 20100928
  Receipt Date: 20100924
  Transmission Date: 20110219
  Serious: Yes (Other)
  Sender: FDA-Public Use
  Company Number: US-BRISTOL-MYERS SQUIBB COMPANY-15303340

PATIENT
  Age: 16 Year

DRUGS (1)
  1. ABILIFY [Suspect]

REACTIONS (1)
  - BUNDLE BRANCH BLOCK RIGHT [None]
